FAERS Safety Report 16672299 (Version 2)
Quarter: 2019Q3

REPORT INFORMATION
  Report Type: Spontaneous
  Country: DE (occurrence: DE)
  Receive Date: 20190806
  Receipt Date: 20190823
  Transmission Date: 20191004
  Serious: Yes (Hospitalization)
  Sender: FDA-Public Use
  Company Number: DE-HORMOSAN PHARMA GMBH-2019-04864

PATIENT
  Age: 62 Year
  Sex: Male

DRUGS (1)
  1. TADALAFIL-HORMOSAN 5 MG FILMTABLETTEN [Suspect]
     Active Substance: TADALAFIL
     Indication: PRODUCT USED FOR UNKNOWN INDICATION
     Dosage: 5 MILLIGRAM
     Route: 065

REACTIONS (3)
  - Counterfeit product administered [Unknown]
  - Fall [Unknown]
  - Dizziness [Unknown]
